FAERS Safety Report 14264321 (Version 1)
Quarter: 2017Q4

REPORT INFORMATION
  Report Type: Spontaneous
  Country: GB (occurrence: GB)
  Receive Date: 20171208
  Receipt Date: 20171208
  Transmission Date: 20180321
  Serious: No
  Sender: FDA-Public Use
  Company Number: GB-JAZZ-2017-GB-013943

PATIENT
  Age: 13 Year
  Sex: Female

DRUGS (1)
  1. XYREM [Suspect]
     Active Substance: SODIUM OXYBATE
     Indication: NARCOLEPSY
     Dosage: UNK
     Route: 048

REACTIONS (5)
  - Headache [Unknown]
  - Confusional state [Unknown]
  - Feeling abnormal [Unknown]
  - Product use issue [Unknown]
  - Malaise [Unknown]
